FAERS Safety Report 9121656 (Version 1)
Quarter: 2013Q1

REPORT INFORMATION
  Report Type: Spontaneous
  Country: US (occurrence: US)
  Receive Date: 20130227
  Receipt Date: 20130227
  Transmission Date: 20140127
  Serious: No
  Sender: FDA-Public Use
  Company Number: US-BIOGENIDEC-2013BI016466

PATIENT
  Sex: Male

DRUGS (2)
  1. TYSABRI [Suspect]
     Indication: MULTIPLE SCLEROSIS
     Route: 042
     Dates: start: 20090205
  2. AVONEX [Concomitant]
     Indication: MULTIPLE SCLEROSIS
     Route: 030
     Dates: start: 20081228

REACTIONS (8)
  - Coordination abnormal [Unknown]
  - Gait disturbance [Unknown]
  - Aphasia [Unknown]
  - Mobility decreased [Unknown]
  - Memory impairment [Unknown]
  - Nuclear magnetic resonance imaging abnormal [Unknown]
  - Fatigue [Unknown]
  - Multiple sclerosis relapse [Unknown]
